FAERS Safety Report 5788216-3 (Version None)
Quarter: 2008Q2

REPORT INFORMATION
  Report Type: 
  Country: None (occurrence: None)
  Receive Date: 20080620
  Receipt Date: 20080605
  Transmission Date: 20081010
  Serious: Yes (Disabling)
  Sender: FDA-Public Use
  Company Number: APP200800190

PATIENT
  Age: 30 Year
  Sex: Male

DRUGS (5)
  1. SENSORCAINE-MPF WITH EPINEPHRINE (BUPIVACAINE HYDROCHLORIDE) [Suspect]
     Indication: MUSCULOSKELETAL PAIN
     Dosage: 30 ML, LOCALLY, INJECTION
     Dates: start: 20040930, end: 20040930
  2. XYLOCAINE W/ EPINEPHRENE [Suspect]
     Indication: MUSCULOSKELETAL PAIN
     Dosage: 250 ML, CONTINUOUS VIA PAIN PUMP, INJECTION
     Dates: start: 20040930
  3. STRYKER PAIN PUMP [Suspect]
     Indication: MUSCULOSKELETAL PAIN
     Dates: start: 20040930
  4. ANCEF [Concomitant]
  5. VICODIN [Concomitant]

REACTIONS (3)
  - CHONDROLYSIS [None]
  - MUSCULOSKELETAL DISCOMFORT [None]
  - MUSCULOSKELETAL PAIN [None]
